FAERS Safety Report 25723800 (Version 1)
Quarter: 2025Q3

REPORT INFORMATION
  Report Type: Spontaneous
  Country: TH (occurrence: TH)
  Receive Date: 20250825
  Receipt Date: 20250825
  Transmission Date: 20251020
  Serious: Yes (Other)
  Sender: NOVARTIS
  Company Number: TH-002147023-NVSC2025TH128434

PATIENT
  Age: 65 Year
  Sex: Female

DRUGS (12)
  1. SACUBITRIL\VALSARTAN [Suspect]
     Active Substance: SACUBITRIL\VALSARTAN
     Indication: Product used for unknown indication
     Dosage: UNK, BID (HALF TABLET, AFTER MEAL)
     Route: 048
     Dates: start: 202302
  2. SACUBITRIL\VALSARTAN [Suspect]
     Active Substance: SACUBITRIL\VALSARTAN
     Dosage: UNK, BID (3/4 TABLET, AFTER MEAL)
     Route: 048
     Dates: start: 202502
  3. GLIPIZIDE [Concomitant]
     Active Substance: GLIPIZIDE
     Indication: Product used for unknown indication
     Dosage: 1 DOSAGE FORM, QD (AC)
     Route: 048
  4. GLIPIZIDE [Concomitant]
     Active Substance: GLIPIZIDE
     Dosage: 1 DOSAGE FORM, QD (BEFORE MEAL)
     Route: 048
     Dates: start: 202302
  5. METFORMIN [Concomitant]
     Active Substance: METFORMIN HYDROCHLORIDE
     Indication: Product used for unknown indication
     Dosage: 1 DOSAGE FORM, BID (PC)
     Route: 048
  6. METFORMIN [Concomitant]
     Active Substance: METFORMIN HYDROCHLORIDE
     Dosage: 1 DOSAGE FORM, BID (AFTER MEAL)
     Route: 048
     Dates: start: 202302
  7. LINAGLIPTIN [Concomitant]
     Active Substance: LINAGLIPTIN
     Indication: Product used for unknown indication
     Dosage: 1 DOSAGE FORM, QD (PC)
     Route: 048
  8. LINAGLIPTIN [Concomitant]
     Active Substance: LINAGLIPTIN
     Dosage: 1 DOSAGE FORM, QD (AFTER MEAL)
     Route: 048
     Dates: start: 202302
  9. ATORVASTATIN [Concomitant]
     Active Substance: ATORVASTATIN
     Indication: Product used for unknown indication
     Route: 048
  10. ATORVASTATIN [Concomitant]
     Active Substance: ATORVASTATIN
     Dosage: 1 DOSAGE FORM, QD (BEFORE BEDTIME)
     Route: 048
     Dates: start: 202302
  11. EZETIMIBE [Concomitant]
     Active Substance: EZETIMIBE
     Indication: Product used for unknown indication
     Dosage: 1 DOSAGE FORM, QD (AFTER MEAL)
     Route: 048
     Dates: start: 202302
  12. EMPAGLIFLOZIN [Concomitant]
     Active Substance: EMPAGLIFLOZIN
     Indication: Product used for unknown indication
     Dosage: 1 DOSAGE FORM, QD (AFTER MEAL)
     Route: 048
     Dates: start: 202406, end: 202412

REACTIONS (6)
  - Cardiac failure chronic [Recovering/Resolving]
  - Acute kidney injury [Unknown]
  - Wrong technique in product usage process [Unknown]
  - Hypotension [Unknown]
  - Blood creatinine increased [Recovering/Resolving]
  - N-terminal prohormone brain natriuretic peptide abnormal [Unknown]

NARRATIVE: CASE EVENT DATE: 20241201
